FAERS Safety Report 9541710 (Version 2)
Quarter: 2014Q1

REPORT INFORMATION
  Report Type: Spontaneous
  Country: US (occurrence: None)
  Receive Date: 20130524
  Receipt Date: 20130724
  Transmission Date: 20141002
  Serious: No
  Sender: FDA-Public Use
  Company Number: PHEH2013US002453

PATIENT
  Age: 62 Year
  Sex: Female
  Weight: 99.8 kg

DRUGS (5)
  1. GILENYA [Suspect]
     Indication: MULTIPLE SCLEROSIS
     Route: 048
     Dates: start: 20111018
  2. AMBIEN (ZOLPIDEM TARTRATE) [Concomitant]
  3. NAMENDA (MEMANTINE HYDROCHLORIDE) [Concomitant]
  4. VERAPAMIL HCL (VERAPAMIL HYDROCHLORIDE) [Concomitant]
  5. ZOCOR (SIMVASTATIN) [Concomitant]

REACTIONS (2)
  - Chest discomfort [None]
  - Eye pain [None]
